FAERS Safety Report 4682901-2 (Version None)
Quarter: 2005Q2

REPORT INFORMATION
  Report Type: 
  Country: None (occurrence: None)
  Receive Date: 20050606
  Receipt Date: 20050525
  Transmission Date: 20051028
  Serious: Yes (Other)
  Sender: FDA-Public Use
  Company Number: FR-NOVOPROD-244418

PATIENT
  Age: 49 Year
  Sex: Female

DRUGS (3)
  1. NOVOSEVEN [Suspect]
     Indication: LIVER TRANSPLANT
     Dosage: 2 HOURS INTERVAL
  2. NOVOSEVEN [Suspect]
     Dosage: 2 HOURS INTERVAL
  3. FRESH FROZEN PLASMA [Suspect]
     Dosage: 45 ML/KG

REACTIONS (1)
  - MYOCARDIAL ISCHAEMIA [None]
